FAERS Safety Report 9071246 (Version 3)
Quarter: 2014Q1

REPORT INFORMATION
  Report Type: Report from Study
  Country: AU (occurrence: AU)
  Receive Date: 20130129
  Receipt Date: 20140131
  Transmission Date: 20141002
  Serious: Yes (Disabling, Other)
  Sender: FDA-Public Use
  Company Number: AU-ROCHE-1183828

PATIENT
  Age: 80 Year
  Sex: Male
  Weight: 65.06 kg

DRUGS (4)
  1. RANIBIZUMAB [Suspect]
     Indication: RETINAL VEIN OCCLUSION
     Dosage: DATE OF LAST DOSE PRIOR TO SAE: 02/NOV/2012
     Route: 050
     Dates: start: 20120807
  2. RANIBIZUMAB [Suspect]
     Route: 050
     Dates: start: 20120810
  3. RANIBIZUMAB [Suspect]
     Route: 050
     Dates: start: 20121005
  4. RAMIPRIL [Concomitant]

REACTIONS (2)
  - Ocular ischaemic syndrome [Not Recovered/Not Resolved]
  - Inappropriate schedule of drug administration [Unknown]
